FAERS Safety Report 17268359 (Version 4)
Quarter: 2020Q3

REPORT INFORMATION
  Report Type: Spontaneous
  Country: US (occurrence: US)
  Receive Date: 20200114
  Receipt Date: 20200907
  Transmission Date: 20201102
  Serious: Yes (Other)
  Sender: FDA-Public Use
  Company Number: US-TEVA-2020-US-1167814

PATIENT
  Age: 62 Year
  Sex: Male

DRUGS (2)
  1. BUPRENORPHINE. [Suspect]
     Active Substance: BUPRENORPHINE
     Indication: INTERVERTEBRAL DISC PROTRUSION
  2. BUPRENORPHINE. [Suspect]
     Active Substance: BUPRENORPHINE
     Indication: BACK DISORDER
     Dosage: 20 MCG/HOUR
     Route: 062

REACTIONS (7)
  - Application site reaction [Recovered/Resolved]
  - Product quality issue [Unknown]
  - Application site haemorrhage [Recovered/Resolved]
  - Application site urticaria [Recovered/Resolved]
  - Application site erosion [Recovered/Resolved]
  - Application site erythema [Recovered/Resolved]
  - Application site pain [Recovered/Resolved]

NARRATIVE: CASE EVENT DATE: 2020
